FAERS Safety Report 4782107-2 (Version None)
Quarter: 2005Q3

REPORT INFORMATION
  Report Type: 
  Country: None (occurrence: None)
  Receive Date: 20050928
  Receipt Date: 20050518
  Transmission Date: 20060218
  Serious: Yes (Death, Disabling)
  Sender: FDA-Public Use
  Company Number: GB-MERCK-0505GBR00140

PATIENT
  Age: 65 Year
  Sex: Male

DRUGS (11)
  1. CANCIDAS [Suspect]
     Indication: BRONCHOPULMONARY ASPERGILLOSIS
     Route: 042
  2. CANCIDAS [Suspect]
     Route: 042
     Dates: end: 20050520
  3. PREDNISOLONE [Concomitant]
     Route: 065
     Dates: start: 20041103
  4. PREDNISOLONE [Concomitant]
     Route: 065
     Dates: start: 20050511
  5. OMEPRAZOLE [Concomitant]
     Route: 065
     Dates: start: 20041129
  6. METOCLOPRAMIDE [Concomitant]
     Route: 065
     Dates: start: 20050511
  7. FLUOXETINE [Concomitant]
     Route: 065
     Dates: start: 20050511
  8. ALFACALCIDOL [Concomitant]
     Route: 065
     Dates: start: 20050423
  9. BISOPROLOL [Concomitant]
     Route: 065
     Dates: start: 20050404, end: 20050511
  10. DIGOXIN [Concomitant]
     Route: 065
     Dates: start: 20050401, end: 20050620
  11. DARBEPOETIN ALFA [Concomitant]
     Route: 065
     Dates: start: 20050401, end: 20050616

REACTIONS (2)
  - CEREBROVASCULAR ACCIDENT [None]
  - VISION BLURRED [None]
